FAERS Safety Report 5108028-3 (Version None)
Quarter: 2006Q3

REPORT INFORMATION
  Report Type: 
  Country: None (occurrence: None)
  Receive Date: 20060914
  Receipt Date: 20060903
  Transmission Date: 20061208
  Serious: Yes (Death)
  Sender: FDA-Public Use
  Company Number: 2006106519

PATIENT
  Age: 40 Year
  Sex: Male

DRUGS (7)
  1. LIPITOR [Suspect]
     Indication: DRUG USE FOR UNKNOWN INDICATION
  2. GEMFIBROZIL [Suspect]
     Indication: DRUG USE FOR UNKNOWN INDICATION
  3. MS CONTIN [Concomitant]
  4. ZOLOFT [Concomitant]
  5. IBUPROFEN [Concomitant]
  6. PANADEINE FORTE (CODEINE PHOSPHATE, PARACETAMOL) [Concomitant]
  7. DIAZEPAM [Concomitant]

REACTIONS (2)
  - MYOSITIS [None]
  - RHABDOMYOLYSIS [None]
